FAERS Safety Report 22947193 (Version 2)
Quarter: 2023Q4

REPORT INFORMATION
  Report Type: Report from Study
  Country: GB (occurrence: None)
  Receive Date: 20230915
  Receipt Date: 20231106
  Transmission Date: 20240109
  Serious: Yes (Death, Hospitalization)
  Sender: FDA-Public Use
  Company Number: GB-ROCHE-3421409

PATIENT
  Age: 77 Year
  Sex: Male

DRUGS (1)
  1. ATEZOLIZUMAB [Suspect]
     Active Substance: ATEZOLIZUMAB
     Indication: Bladder cancer
     Dosage: ON 04/AUG/2023, LAST DOSE OF ATEZOLIZUMAB WAS ADMINISTERED PRIOR TO SAE.
     Route: 041
     Dates: start: 20230623

REACTIONS (4)
  - Hypoxia [Recovered/Resolved]
  - Oxygen saturation decreased [Fatal]
  - Dyspnoea [Fatal]
  - Haematuria [Fatal]

NARRATIVE: CASE EVENT DATE: 20230823
